FAERS Safety Report 4906637-5 (Version None)
Quarter: 2006Q1

REPORT INFORMATION
  Report Type: 
  Country: None (occurrence: None)
  Receive Date: 20060209
  Receipt Date: 20060207
  Transmission Date: 20060701
  Serious: Yes (Hospitalization)
  Sender: FDA-Public Use
  Company Number: J200600298

PATIENT
  Age: 20 Year
  Sex: Male

DRUGS (3)
  1. SAWACILLIN [Suspect]
     Dosage: 250MG PER DAY
     Route: 048
     Dates: start: 20060130, end: 20060130
  2. HYPEN [Suspect]
     Dosage: 200MG PER DAY
     Route: 048
     Dates: start: 20060130, end: 20060130
  3. TARIVID [Suspect]
     Dosage: 5MG PER DAY
     Route: 065
     Dates: start: 20060130, end: 20060130

REACTIONS (5)
  - ANAPHYLACTIC SHOCK [None]
  - BLOOD PRESSURE DECREASED [None]
  - DYSPNOEA [None]
  - ERYTHEMA [None]
  - RASH [None]
